FAERS Safety Report 4757093-1 (Version None)
Quarter: 2005Q3

REPORT INFORMATION
  Report Type: 
  Country: None (occurrence: None)
  Receive Date: 20050829
  Receipt Date: 20050829
  Transmission Date: 20060218
  Serious: Yes (Life-Threatening, Hospitalization, Disabling)
  Sender: FDA-Public Use
  Company Number: None

PATIENT
  Age: 52 Year
  Sex: Female
  Weight: 111.1313 kg

DRUGS (1)
  1. FENTANYL [Suspect]

REACTIONS (6)
  - ENCEPHALOPATHY [None]
  - IMPAIRED WORK ABILITY [None]
  - INFLAMMATION [None]
  - LIVER FUNCTION TEST ABNORMAL [None]
  - RENAL FAILURE ACUTE [None]
  - RESPIRATION ABNORMAL [None]
